FAERS Safety Report 5516312-4 (Version None)
Quarter: 2007Q4

REPORT INFORMATION
  Report Type: 
  Country: None (occurrence: None)
  Receive Date: 20071114
  Receipt Date: 20070126
  Transmission Date: 20080405
  Serious: No
  Sender: FDA-Public Use
  Company Number: A0636971A

PATIENT
  Age: 49 Year
  Sex: Female

DRUGS (2)
  1. COMMIT [Suspect]
     Dates: start: 20070124
  2. ANTIDEPRESSANT [Concomitant]

REACTIONS (3)
  - INSOMNIA [None]
  - INTENTIONAL DRUG MISUSE [None]
  - MENTAL IMPAIRMENT [None]
